FAERS Safety Report 24443002 (Version 2)
Quarter: 2024Q4

REPORT INFORMATION
  Report Type: Report from Study
  Country: US (occurrence: US)
  Receive Date: 20241016
  Receipt Date: 20241017
  Transmission Date: 20250114
  Serious: No
  Sender: ROCHE
  Company Number: US-ROCHE-3572213

PATIENT
  Age: 33 Year
  Sex: Male
  Weight: 90.0 kg

DRUGS (11)
  1. HEMLIBRA [Suspect]
     Active Substance: EMICIZUMAB-KXWH
     Indication: Factor VIII deficiency
     Dosage: 105 MG SINGLE-USE VIAL
     Route: 065
     Dates: start: 20240502
  2. HEMLIBRA [Suspect]
     Active Substance: EMICIZUMAB-KXWH
     Dosage: 270MG/1.8ML, 150 + 60MG X 2 PER DOSE
     Route: 058
  3. PREDNISONE [Concomitant]
     Active Substance: PREDNISONE
  4. COLCHICINE [Concomitant]
     Active Substance: COLCHICINE
  5. ADVAIR HFA [Concomitant]
     Active Substance: FLUTICASONE PROPIONATE\SALMETEROL XINAFOATE
  6. AZELASTINE [Concomitant]
     Active Substance: AZELASTINE
  7. SERTRALINE [Concomitant]
     Active Substance: SERTRALINE HYDROCHLORIDE
  8. DUPILUMAB [Concomitant]
     Active Substance: DUPILUMAB
  9. BUDESONIDE [Concomitant]
     Active Substance: BUDESONIDE
  10. FLONASE [Concomitant]
     Active Substance: FLUTICASONE PROPIONATE
  11. ADVATE [Concomitant]
     Active Substance: ANTIHEMOPHILIC FACTOR, HUMAN RECOMBINANT

REACTIONS (1)
  - Haemorrhage [Unknown]
